FAERS Safety Report 12395922 (Version 3)
Quarter: 2016Q3

REPORT INFORMATION
  Report Type: Spontaneous
  Country: GB (occurrence: GB)
  Receive Date: 20160523
  Receipt Date: 20160718
  Transmission Date: 20161109
  Serious: Yes (Other)
  Sender: FDA-Public Use
  Company Number: GB-ROCHE-1761466

PATIENT
  Age: 45 Year
  Sex: Female
  Weight: 68.5 kg

DRUGS (9)
  1. DOCETAXOL [Concomitant]
     Active Substance: DOCETAXEL
  2. CHLORPHENIRAMINE. [Concomitant]
     Active Substance: CHLORPHENIRAMINE
     Indication: HYPERSENSITIVITY
     Dosage: AS REQUIRED WITH CHEMOTHERAPY
     Route: 042
     Dates: start: 201506, end: 201602
  3. HYDROCORTISONE. [Concomitant]
     Active Substance: HYDROCORTISONE
     Indication: HYPERSENSITIVITY
     Dosage: AS REQUIRED WITH CHEMOTHERAPY
     Route: 042
     Dates: start: 201506, end: 201602
  4. CYCLIZINE [Concomitant]
     Active Substance: CYCLIZINE
     Route: 048
     Dates: start: 201506, end: 201602
  5. PERJETA [Suspect]
     Active Substance: PERTUZUMAB
     Indication: PRODUCT USED FOR UNKNOWN INDICATION
     Route: 065
  6. KADCYLA [Suspect]
     Active Substance: ADO-TRASTUZUMAB EMTANSINE
     Indication: BREAST CANCER METASTATIC
     Route: 065
     Dates: start: 201506, end: 201602
  7. PARACETAMOL [Concomitant]
     Active Substance: ACETAMINOPHEN
     Indication: PAIN
     Dosage: AS REQUIRED WITH CHEMOTHERAPY
     Route: 065
     Dates: start: 201506, end: 201602
  8. HERCEPTIN [Suspect]
     Active Substance: TRASTUZUMAB
     Indication: PRODUCT USED FOR UNKNOWN INDICATION
     Route: 065
  9. CYCLIZINE [Concomitant]
     Active Substance: CYCLIZINE
     Indication: NAUSEA
     Dosage: AS REQUIRED WITH CHEMOTHERAPY
     Route: 042
     Dates: end: 201602

REACTIONS (4)
  - Portal hypertension [Unknown]
  - Nodular regenerative hyperplasia [Not Recovered/Not Resolved]
  - Hepatic function abnormal [Unknown]
  - Spider naevus [Not Recovered/Not Resolved]

NARRATIVE: CASE EVENT DATE: 201602
